FAERS Safety Report 14675015 (Version 1)
Quarter: 2018Q1

REPORT INFORMATION
  Report Type: Spontaneous
  Country: TW (occurrence: TW)
  Receive Date: 20180323
  Receipt Date: 20180323
  Transmission Date: 20180509
  Serious: Yes (Other)
  Sender: FDA-Public Use
  Company Number: PHHY2018TW048544

PATIENT
  Age: 56 Year
  Sex: Female
  Weight: 49.5 kg

DRUGS (1)
  1. TEGRETOL [Suspect]
     Active Substance: CARBAMAZEPINE
     Indication: TRIGEMINAL NEURALGIA
     Dosage: 200 MG, BID
     Route: 048
     Dates: start: 20121016, end: 20151113

REACTIONS (3)
  - Rash generalised [Unknown]
  - Sjogren^s syndrome [Unknown]
  - Fixed eruption [Unknown]

NARRATIVE: CASE EVENT DATE: 20131231
